FAERS Safety Report 7497677-3 (Version None)
Quarter: 2011Q2

REPORT INFORMATION
  Report Type: 
  Country: None (occurrence: None)
  Receive Date: 20110523
  Receipt Date: 20110512
  Transmission Date: 20111010
  Serious: Yes (Life-Threatening)
  Sender: FDA-Public Use
  Company Number: GB-BRISTOL-MYERS SQUIBB COMPANY-15739345

PATIENT
  Age: 66 Year
  Sex: Male

DRUGS (10)
  1. DAUNORUBICIN HCL [Suspect]
     Dosage: NO OF COURSES:2
     Dates: start: 20110404, end: 20110412
  2. MYLOTARG [Suspect]
     Dosage: NO OF COURSES:2
     Dates: start: 20110404, end: 20110412
  3. LEVOTHYROXINE SODIUM [Concomitant]
     Dates: start: 20110426, end: 20110502
  4. ETOPOSIDE [Suspect]
     Dosage: NO OF COURSES:2
     Dates: start: 20110404, end: 20110412
  5. MULTI-VITAMINS [Concomitant]
     Dosage: 1DF=1 CAP
     Dates: start: 20110427, end: 20110502
  6. CYTARABINE [Suspect]
     Dosage: NO OF COURSES:2
     Dates: start: 20110404, end: 20110412
  7. GENTAMICIN [Concomitant]
     Dates: start: 20110426, end: 20110502
  8. VITAMIN D [Concomitant]
     Dates: start: 20110427, end: 20110502
  9. AMBISOME [Suspect]
     Dates: start: 20110426, end: 20110503
  10. ONDANSETRON [Concomitant]
     Dates: start: 20110428

REACTIONS (3)
  - PETECHIAE [None]
  - NEUTROPENIA [None]
  - HYPOKALAEMIA [None]
